FAERS Safety Report 8042325-7 (Version None)
Quarter: 2012Q1

REPORT INFORMATION
  Report Type: 
  Country: None (occurrence: None)
  Receive Date: 20120112
  Receipt Date: 20120103
  Transmission Date: 20120608
  Serious: Yes (Other)
  Sender: FDA-Public Use
  Company Number: TR-BAXTER-2011BH038174

PATIENT
  Age: 22 Year
  Weight: 45 kg

DRUGS (1)
  1. FEIBA [Suspect]
     Indication: GASTROINTESTINAL HAEMORRHAGE
     Route: 065
     Dates: start: 20020324

REACTIONS (1)
  - DRUG INEFFECTIVE [None]
